FAERS Safety Report 8024984-8 (Version None)
Quarter: 2012Q1

REPORT INFORMATION
  Report Type: 
  Country: None (occurrence: None)
  Receive Date: 20120105
  Receipt Date: 20111230
  Transmission Date: 20120608
  Serious: Yes (Hospitalization, Other)
  Sender: FDA-Public Use
  Company Number: US-CELGENEUS-163-21880-11113591

PATIENT
  Sex: Female

DRUGS (26)
  1. EXTRA STRENGTH TYLENOL [Concomitant]
     Indication: HEADACHE
  2. POTASSIUM PHOSPHATES [Concomitant]
     Indication: BLOOD PHOSPHORUS DECREASED
     Dosage: 250 MILLIGRAM
     Route: 048
     Dates: start: 20100824
  3. COMPAZINE [Concomitant]
     Indication: NAUSEA
     Dosage: 10 MILLIGRAM
     Route: 048
     Dates: start: 20110211
  4. POTASSIUM CHLORIDE [Concomitant]
     Dosage: 30 MILLIGRAM
     Route: 048
     Dates: start: 20110223
  5. SINGULAIR [Concomitant]
     Indication: ASTHMA
     Dosage: 10 MILLIGRAM
     Route: 048
     Dates: start: 20100402
  6. MULTI-VITAMINS [Concomitant]
     Indication: ROUTINE HEALTH MAINTENANCE
     Dosage: 1 TABLET
     Route: 048
     Dates: start: 20100702
  7. REVLIMID [Suspect]
     Dosage: 25 MILLIGRAM
     Route: 048
     Dates: start: 20100809, end: 20111103
  8. REVLIMID [Suspect]
     Dosage: 25 MILLIGRAM
     Route: 048
     Dates: start: 20111123
  9. AREDIA [Concomitant]
     Indication: MULTIPLE MYELOMA
     Dosage: 90 MILLIGRAM
     Route: 041
     Dates: start: 20110615
  10. CYMBALTA [Concomitant]
     Indication: FIBROMYALGIA
     Dosage: 60 MILLIGRAM
     Route: 048
     Dates: start: 20111007
  11. FLONASE [Concomitant]
     Indication: SINUSITIS
     Dosage: 2 SPRAYS
     Route: 045
     Dates: start: 20091113
  12. EXTRA STRENGTH TYLENOL [Concomitant]
     Indication: FIBROMYALGIA
     Dosage: 50 MILLIGRAM
     Route: 048
     Dates: start: 20090910
  13. CALCIUM WITH D [Concomitant]
     Indication: OSTEOPOROSIS
     Dosage: 500 MILLIGRAM
     Route: 048
     Dates: start: 20080530
  14. NUCYNTA [Concomitant]
  15. REVLIMID [Suspect]
     Indication: MULTIPLE MYELOMA
     Dosage: 25 MILLIGRAM
     Route: 048
     Dates: start: 20080501, end: 20080101
  16. ALBUTEROL [Concomitant]
     Indication: ASTHMA
     Dosage: 2 PUFFS
     Route: 065
     Dates: start: 20101019
  17. COMPAZINE [Concomitant]
     Indication: VOMITING
  18. PRILOSEC [Concomitant]
     Dosage: 20 MILLIGRAM
     Route: 048
     Dates: start: 20090101
  19. VALACYCLOVIR [Concomitant]
     Dosage: 500 MILLIGRAM
     Route: 048
     Dates: start: 20100808
  20. NUCYNTA [Concomitant]
     Indication: BACK PAIN
     Dosage: 50 MILLIGRAM
     Route: 048
     Dates: start: 20100810
  21. WARFARIN SODIUM [Concomitant]
     Dosage: 5 MILLIGRAM
     Route: 048
  22. PROBIOTIC [Concomitant]
     Indication: INSOMNIA
     Route: 048
     Dates: start: 20111005, end: 20111107
  23. WARFARIN SODIUM [Concomitant]
     Dosage: 2.5 MILLIGRAM
     Route: 048
     Dates: start: 20101216
  24. NUCYNTA [Concomitant]
     Indication: MUSCLE SPASMS
  25. VITAMIN B-12 [Concomitant]
     Indication: FATIGUE
     Dosage: 2000 MILLIGRAM
     Route: 048
     Dates: start: 20100702
  26. MELATONIN [Concomitant]
     Indication: INSOMNIA
     Route: 048
     Dates: start: 20110420, end: 20111107

REACTIONS (5)
  - HAEMORRHAGE [None]
  - HAEMATEMESIS [None]
  - ANAEMIA [None]
  - IMPAIRED GASTRIC EMPTYING [None]
  - DIARRHOEA [None]
